FAERS Safety Report 9156796 (Version 1)
Quarter: 2013Q1

REPORT INFORMATION
  Report Type: Spontaneous
  Country: US (occurrence: US)
  Receive Date: 20130312
  Receipt Date: 20130312
  Transmission Date: 20140127
  Serious: Yes (Hospitalization)
  Sender: FDA-Public Use
  Company Number: US-BAYER-2013-027995

PATIENT
  Age: 27 Year
  Sex: Female
  Weight: 64.4 kg

DRUGS (3)
  1. YASMIN [Suspect]
     Indication: CONTRACEPTION
  2. PERCOCET [OXYCODONE HYDROCHLORIDE,OXYCODONE TEREPHTHALATE,PARACETA [Concomitant]
     Dosage: 5/325 ONE TO TWO TABS (INTERPRETED AS TABLETS) Q. 4-6 HOURS
     Route: 048
  3. VICODIN [Concomitant]
     Dosage: 5/500 ONE TO TWO TABS Q. 4-6 HOURS
     Route: 048

REACTIONS (2)
  - Pulmonary embolism [None]
  - Deep vein thrombosis [None]
